FAERS Safety Report 5268223-X (Version None)
Quarter: 2007Q1

REPORT INFORMATION
  Report Type: 
  Country: None (occurrence: None)
  Receive Date: 20070319
  Receipt Date: 20070308
  Transmission Date: 20070707
  Serious: Yes (Hospitalization)
  Sender: FDA-Public Use
  Company Number: CH-AVENTIS-200711218EU

PATIENT
  Age: 46 Year
  Sex: Male

DRUGS (6)
  1. ANZEMET [Suspect]
     Route: 041
     Dates: start: 20070123, end: 20070123
  2. XELODA [Suspect]
     Dosage: DOSE: 4 DF
     Route: 048
     Dates: start: 20070123, end: 20070123
  3. TAXOTERE [Suspect]
     Route: 041
     Dates: start: 20070123, end: 20070123
  4. MEPHAMESON                         /00016001/ [Suspect]
     Dosage: DOSE: 8MG/2ML
     Route: 041
     Dates: start: 20070123, end: 20070123
  5. CISPLATIN [Suspect]
     Route: 041
     Dates: start: 20070123, end: 20070123
  6. EMEND [Concomitant]
     Route: 048
     Dates: start: 20070123, end: 20070123

REACTIONS (2)
  - INTESTINAL ISCHAEMIA [None]
  - LARGE INTESTINE PERFORATION [None]
